FAERS Safety Report 11563130 (Version 1)
Quarter: 2015Q3

REPORT INFORMATION
  Report Type: Spontaneous
  Country: US (occurrence: US)
  Receive Date: 20150916
  Receipt Date: 20150916
  Transmission Date: 20151125
  Serious: No
  Sender: FDA-Public Use
  Company Number: US-ELI_LILLY_AND_COMPANY-US200901002990

PATIENT
  Age: 71 Year
  Sex: Female

DRUGS (2)
  1. FORTEO [Suspect]
     Active Substance: TERIPARATIDE
     Indication: OSTEOPOROSIS
     Dosage: 20 UG, DAILY (1/D)
     Dates: start: 200808
  2. FORTEO [Suspect]
     Active Substance: TERIPARATIDE
     Dosage: 20 UG, DAILY (1/D)

REACTIONS (7)
  - Injection site erythema [Not Recovered/Not Resolved]
  - Colitis [Recovering/Resolving]
  - Injection site pruritus [Not Recovered/Not Resolved]
  - Malaise [Recovering/Resolving]
  - Urticaria [Not Recovered/Not Resolved]
  - Arthralgia [Not Recovered/Not Resolved]
  - Diverticulitis [Recovering/Resolving]

NARRATIVE: CASE EVENT DATE: 200808
